FAERS Safety Report 6010173-5 (Version None)
Quarter: 2008Q4

REPORT INFORMATION
  Report Type: 
  Country: None (occurrence: None)
  Receive Date: 20081218
  Receipt Date: 20081216
  Transmission Date: 20090506
  Serious: Yes (Death)
  Sender: FDA-Public Use
  Company Number: US-BRISTOL-MYERS SQUIBB COMPANY-14414346

PATIENT
  Age: 30 Year
  Sex: Female

DRUGS (7)
  1. ABILIFY [Suspect]
     Indication: TURNER'S SYNDROME
     Dosage: START DATE OF TREATMENT:OVER A YEAR AGO.
     Route: 048
  2. ABILIFY [Suspect]
     Indication: SCHIZOAFFECTIVE DISORDER
     Dosage: START DATE OF TREATMENT:OVER A YEAR AGO.
     Route: 048
  3. ABILIFY [Suspect]
     Indication: MILD MENTAL RETARDATION
     Dosage: START DATE OF TREATMENT:OVER A YEAR AGO.
     Route: 048
  4. ABILIFY [Suspect]
     Indication: HALLUCINATION
     Dosage: START DATE OF TREATMENT:OVER A YEAR AGO.
     Route: 048
  5. LEXAPRO [Suspect]
     Indication: TURNER'S SYNDROME
  6. LEXAPRO [Suspect]
     Indication: SCHIZOAFFECTIVE DISORDER
  7. LEXAPRO [Suspect]
     Indication: MILD MENTAL RETARDATION

REACTIONS (1)
  - DEATH [None]
